FAERS Safety Report 6553092-8 (Version None)
Quarter: 2010Q1

REPORT INFORMATION
  Report Type: 
  Country: None (occurrence: None)
  Receive Date: 20100127
  Receipt Date: 20090116
  Transmission Date: 20100710
  Serious: No
  Sender: FDA-Public Use
  Company Number: A0762857A

PATIENT

DRUGS (2)
  1. SUMATRIPTAN SUCCINATE [Suspect]
     Indication: MIGRAINE
     Dates: start: 20090106
  2. IMITREX [Concomitant]

REACTIONS (1)
  - DRUG INEFFECTIVE [None]
